FAERS Safety Report 24351869 (Version 1)
Quarter: 2024Q3

REPORT INFORMATION
  Report Type: Report from Study
  Country: CA (occurrence: CA)
  Receive Date: 20240923
  Receipt Date: 20240923
  Transmission Date: 20241017
  Serious: No
  Sender: ROCHE
  Company Number: CA-ROCHE-3559647

PATIENT
  Age: 31 Year
  Sex: Female
  Weight: 74.4 kg

DRUGS (13)
  1. HERCEPTIN [Suspect]
     Active Substance: TRASTUZUMAB
     Indication: HER2 positive breast cancer
     Route: 065
  2. PERJETA [Suspect]
     Active Substance: PERTUZUMAB
     Indication: HER2 positive breast cancer
     Dosage: LOADING DOSE
     Route: 042
  3. PERJETA [Suspect]
     Active Substance: PERTUZUMAB
     Dosage: LOADING DOSE
     Route: 042
  4. DOCETAXEL [Suspect]
     Active Substance: DOCETAXEL\DOCETAXEL ANHYDROUS
     Indication: Chemotherapy
     Route: 065
  5. CORTISON [Concomitant]
  6. DEXAMETHASONE [Concomitant]
     Active Substance: DEXAMETHASONE
  7. PEGFILGRASTIM [Concomitant]
     Active Substance: PEGFILGRASTIM
  8. LOPERAMIDE [Concomitant]
     Active Substance: LOPERAMIDE
  9. PREGABALIN [Concomitant]
     Active Substance: PREGABALIN
  10. PROCHLORPERAZINE [Concomitant]
     Active Substance: PROCHLORPERAZINE
  11. BENADRYL [Concomitant]
     Active Substance: DIPHENHYDRAMINE HYDROCHLORIDE
  12. CORTISONE [Concomitant]
     Active Substance: CORTISONE
  13. PROCHLORPERAZINE [Concomitant]
     Active Substance: PROCHLORPERAZINE

REACTIONS (13)
  - Dyspepsia [Recovered/Resolved]
  - Trichodynia [Recovered/Resolved]
  - Acne [Unknown]
  - Constipation [Unknown]
  - Fatigue [Unknown]
  - Bacterial vaginosis [Recovered/Resolved]
  - Diarrhoea [Unknown]
  - Musculoskeletal stiffness [Recovered/Resolved]
  - Nausea [Unknown]
  - Dysgeusia [Unknown]
  - Ocular hyperaemia [Unknown]
  - Drug hypersensitivity [Unknown]
  - Erythema [Unknown]

NARRATIVE: CASE EVENT DATE: 20240401
